FAERS Safety Report 17515903 (Version 2)
Quarter: 2020Q2

REPORT INFORMATION
  Report Type: Report from Study
  Country: US (occurrence: US)
  Receive Date: 20200309
  Receipt Date: 20200604
  Transmission Date: 20200713
  Serious: Yes (Death, Hospitalization, Other)
  Sender: FDA-Public Use
  Company Number: US-ASTELLAS-2020US009032

PATIENT
  Age: 85 Year
  Sex: Male

DRUGS (1)
  1. ENZALUTAMIDE [Suspect]
     Active Substance: ENZALUTAMIDE
     Indication: PROSTATE CANCER
     Route: 048
     Dates: start: 20191001

REACTIONS (4)
  - Malignant neoplasm progression [Fatal]
  - Respiratory failure [Unknown]
  - Renal failure [Unknown]
  - Cancer pain [Unknown]

NARRATIVE: CASE EVENT DATE: 202002
